FAERS Safety Report 12930584 (Version 3)
Quarter: 2017Q1

REPORT INFORMATION
  Report Type: Spontaneous
  Country: IT (occurrence: IT)
  Receive Date: 20161110
  Receipt Date: 20170206
  Transmission Date: 20170428
  Serious: Yes (Other)
  Sender: FDA-Public Use
  Company Number: IT-MYLANLABS-2016M1047762

PATIENT

DRUGS (2)
  1. IBUPROFEN. [Suspect]
     Active Substance: IBUPROFEN
     Indication: EAR INFECTION
     Dosage: 60 MG, QD
  2. BETAMETHASONE. [Concomitant]
     Active Substance: BETAMETHASONE
     Indication: EAR INFECTION
     Dosage: UNK

REACTIONS (4)
  - Hypothermia [Recovered/Resolved]
  - Hyperhidrosis [Recovered/Resolved]
  - Chills [Recovered/Resolved]
  - Product use issue [Recovered/Resolved]
